FAERS Safety Report 17426075 (Version 1)
Quarter: 2020Q1

REPORT INFORMATION
  Report Type: Spontaneous
  Country: ES (occurrence: ES)
  Receive Date: 20200217
  Receipt Date: 20200217
  Transmission Date: 20200409
  Serious: Yes (Other)
  Sender: FDA-Public Use
  Company Number: ES-TEVA-2020-ES-1187173

PATIENT

DRUGS (1)
  1. CINQAERO 10 MG/ML [Suspect]
     Active Substance: RESLIZUMAB
     Route: 042

REACTIONS (1)
  - Glioblastoma multiforme [Unknown]
